FAERS Safety Report 17640601 (Version 2)
Quarter: 2020Q2

REPORT INFORMATION
  Report Type: Spontaneous
  Country: BR (occurrence: BR)
  Receive Date: 20200407
  Receipt Date: 20200414
  Transmission Date: 20200713
  Serious: No
  Sender: FDA-Public Use
  Company Number: BR-ALLERGAN-2014441US

PATIENT
  Sex: Female
  Weight: 63 kg

DRUGS (1)
  1. LATISSE [Suspect]
     Active Substance: BIMATOPROST
     Indication: GROWTH OF EYELASHES
     Dosage: UNK UNK, QPM
     Route: 061
     Dates: start: 20200129, end: 20200325

REACTIONS (6)
  - Visual acuity reduced [Unknown]
  - Hordeolum [Not Recovered/Not Resolved]
  - Drug ineffective [Unknown]
  - Prescription drug used without a prescription [Unknown]
  - Ocular hyperaemia [Unknown]
  - Eye irritation [Unknown]
